FAERS Safety Report 7338118-6 (Version None)
Quarter: 2011Q1

REPORT INFORMATION
  Report Type: 
  Country: None (occurrence: None)
  Receive Date: 20110308
  Receipt Date: 20110302
  Transmission Date: 20110831
  Serious: Yes (Death, Other)
  Sender: FDA-Public Use
  Company Number: PHHY2010JP88937

PATIENT
  Sex: Female
  Weight: 46 kg

DRUGS (6)
  1. EXJADE [Suspect]
     Indication: IRON OVERLOAD
     Dosage: 875 MG,
     Route: 048
     Dates: start: 20091116, end: 20100303
  2. AMLODIPINE [Concomitant]
     Dosage: 5 MG
     Route: 048
     Dates: start: 20091116, end: 20100616
  3. STARASID [Suspect]
     Indication: MYELOFIBROSIS
     Dosage: 100MG DAILY
     Route: 048
     Dates: start: 20091014, end: 20100303
  4. STARASID [Suspect]
     Dosage: 100MG DAILY
     Route: 048
     Dates: start: 20100317, end: 20100616
  5. GASTER D [Concomitant]
     Indication: PROPHYLAXIS
     Dosage: 20 MG
     Route: 048
     Dates: start: 20091116, end: 20100616
  6. PREDONINE [Concomitant]
     Indication: MYELOFIBROSIS
     Dosage: 5 MG
     Route: 048
     Dates: start: 20091116, end: 20100616

REACTIONS (9)
  - DISEASE PROGRESSION [None]
  - NEUTROPHIL COUNT DECREASED [None]
  - LYMPHOCYTE COUNT DECREASED [None]
  - BASOPHIL COUNT INCREASED [None]
  - ENTEROCOLITIS [None]
  - ABDOMINAL PAIN [None]
  - WHITE BLOOD CELL COUNT DECREASED [None]
  - MONOCYTE COUNT DECREASED [None]
  - MYELOFIBROSIS [None]
